FAERS Safety Report 18685359 (Version 2)
Quarter: 2021Q2

REPORT INFORMATION
  Report Type: Spontaneous
  Country: US (occurrence: US)
  Receive Date: 20201230
  Receipt Date: 20210518
  Transmission Date: 20210717
  Serious: No
  Sender: FDA-Public Use
  Company Number: US-SUNOVION-2020SUN003828

PATIENT
  Sex: Female
  Weight: 81.63 kg

DRUGS (5)
  1. ABILIFY [Concomitant]
     Active Substance: ARIPIPRAZOLE
  2. LATUDA [Suspect]
     Active Substance: LURASIDONE HYDROCHLORIDE
     Indication: BIPOLAR DISORDER
     Dosage: UNK
     Route: 048
     Dates: start: 2020, end: 2020
  3. CAPLYTA [Suspect]
     Active Substance: LUMATEPERONE
     Indication: BIPOLAR DISORDER
     Dosage: UNK
     Dates: start: 20201211, end: 20201211
  4. LITHIUM. [Concomitant]
     Active Substance: LITHIUM
  5. CAPLYTA [Suspect]
     Active Substance: LUMATEPERONE
     Dosage: 42 MG, QD
     Route: 048
     Dates: start: 20201206

REACTIONS (1)
  - Rash [Recovered/Resolved]
